FAERS Safety Report 7387024-X (Version None)
Quarter: 2011Q1

REPORT INFORMATION
  Report Type: 
  Country: None (occurrence: None)
  Receive Date: 20110331
  Receipt Date: 20110318
  Transmission Date: 20110831
  Serious: Yes (Hospitalization)
  Sender: FDA-Public Use
  Company Number: DE-CELGENEUS-062-C5013-11032311

PATIENT
  Age: 55 Year
  Sex: Male
  Weight: 97 kg

DRUGS (2)
  1. LENALIDOMIDE [Suspect]
     Route: 048
     Dates: start: 20110309
  2. LENALIDOMIDE [Suspect]
     Route: 048
     Dates: start: 20100128

REACTIONS (1)
  - CARDIOVASCULAR FUNCTION TEST [None]
